FAERS Safety Report 4375809-3 (Version None)
Quarter: 2004Q2

REPORT INFORMATION
  Report Type: 
  Country: None (occurrence: None)
  Receive Date: 20040609
  Receipt Date: 20040609
  Transmission Date: 20050107
  Serious: Yes (Death)
  Sender: FDA-Public Use
  Company Number: None

PATIENT
  Age: 40 Year
  Sex: Male
  Weight: 86.1834 kg

DRUGS (2)
  1. OXYCOTIN [Suspect]
     Indication: ACQUIRED IMMUNODEFICIENCY SYNDROME
     Dosage: 80 MG TID ORAL
     Route: 048
     Dates: start: 20010105, end: 20040221
  2. OXYCOTIN [Suspect]
     Indication: NEUROPATHY
     Dosage: 80 MG TID ORAL
     Route: 048
     Dates: start: 20010105, end: 20040221

REACTIONS (2)
  - ACCIDENTAL OVERDOSE [None]
  - DRUG ADDICT [None]
